FAERS Safety Report 11230014 (Version 3)
Quarter: 2015Q3

REPORT INFORMATION
  Report Type: Spontaneous
  Country: TR (occurrence: TR)
  Receive Date: 20150701
  Receipt Date: 20150720
  Transmission Date: 20151125
  Serious: Yes (Other)
  Sender: FDA-Public Use
  Company Number: TR-UCBSA-2015021165

PATIENT
  Sex: Female

DRUGS (1)
  1. CIMZIA [Suspect]
     Active Substance: CERTOLIZUMAB PEGOL
     Indication: PSORIATIC ARTHROPATHY
     Dosage: 200 MG, EV 2 WEEKS(QOW)
     Route: 058
     Dates: start: 20150303, end: 20150613

REACTIONS (2)
  - White blood cell count decreased [Not Recovered/Not Resolved]
  - Shock [Not Recovered/Not Resolved]

NARRATIVE: CASE EVENT DATE: 20150617
